FAERS Safety Report 12313147 (Version 1)
Quarter: 2016Q2

REPORT INFORMATION
  Report Type: Spontaneous
  Country: US (occurrence: None)
  Receive Date: 20160427
  Receipt Date: 20160427
  Transmission Date: 20160815
  Serious: Yes (Hospitalization)
  Sender: FDA-Public Use
  Company Number: None

PATIENT
  Age: 65 Year
  Sex: Male
  Weight: 70.5 kg

DRUGS (13)
  1. CITALOPRAM [Concomitant]
     Active Substance: CITALOPRAM HYDROBROMIDE
  2. TRAZODONE [Concomitant]
     Active Substance: TRAZODONE HYDROCHLORIDE
  3. XIFAXAN [Concomitant]
     Active Substance: RIFAXIMIN
  4. HARVONI [Suspect]
     Active Substance: LEDIPASVIR\SOFOSBUVIR
     Indication: HEPATITIS C
     Dosage: 90/400MG
     Route: 048
     Dates: start: 20150425, end: 20151013
  5. LACTULOSE. [Concomitant]
     Active Substance: LACTULOSE
  6. LORAZEPAM. [Concomitant]
     Active Substance: LORAZEPAM
  7. METHADONE [Concomitant]
     Active Substance: METHADONE HYDROCHLORIDE
  8. PANTOPRAZOLE [Concomitant]
     Active Substance: PANTOPRAZOLE SODIUM
  9. CREON [Concomitant]
     Active Substance: PANCRELIPASE AMYLASE\PANCRELIPASE LIPASE\PANCRELIPASE PROTEASE
  10. MAGNESIUM CHLORIDE. [Concomitant]
     Active Substance: MAGNESIUM CHLORIDE
  11. NEUTRA-PHOS-K [Concomitant]
  12. NORCO [Concomitant]
     Active Substance: ACETAMINOPHEN\HYDROCODONE BITARTRATE
  13. ONDANSETRON [Concomitant]
     Active Substance: ONDANSETRON

REACTIONS (2)
  - Acute kidney injury [None]
  - Lethargy [None]

NARRATIVE: CASE EVENT DATE: 20150619
